FAERS Safety Report 18059482 (Version 1)
Quarter: 2020Q3

REPORT INFORMATION
  Report Type: Spontaneous
  Country: US (occurrence: US)
  Receive Date: 20200723
  Receipt Date: 20200723
  Transmission Date: 20201103
  Serious: Yes (Other)
  Sender: FDA-Public Use
  Company Number: US-PFIZER INC-2020279745

PATIENT
  Age: 29 Year
  Sex: Female

DRUGS (6)
  1. TOUJEO MAX [Concomitant]
     Active Substance: INSULIN GLARGINE
     Dosage: UNK
  2. XELJANZ XR [Suspect]
     Active Substance: TOFACITINIB CITRATE
     Indication: RHEUMATOID ARTHRITIS
     Dosage: 11 MG, DAILY
     Route: 048
     Dates: start: 201907
  3. METFORMIN HCL [Concomitant]
     Active Substance: METFORMIN HYDROCHLORIDE
     Dosage: UNK (1000 MG TABLET)
  4. LEVOTHYROXINE SODIUM. [Concomitant]
     Active Substance: LEVOTHYROXINE SODIUM
     Dosage: UNK (100 MCG TABLET)
  5. OZEMPIC [Concomitant]
     Active Substance: SEMAGLUTIDE
     Dosage: UNK (0.25 OR .5 PEN INJECTR)
  6. HUMALOG [Concomitant]
     Active Substance: INSULIN LISPRO
     Dosage: UNK (HUMALOG 100/ML CARTRIDGE)

REACTIONS (2)
  - COVID-19 [Unknown]
  - Abdominal pain upper [Unknown]
